FAERS Safety Report 14419298 (Version 1)
Quarter: 2018Q1

REPORT INFORMATION
  Report Type: Spontaneous
  Country: US (occurrence: US)
  Receive Date: 20180119
  Receipt Date: 20180119
  Transmission Date: 20180509
  Serious: Yes (Hospitalization)
  Sender: FDA-Public Use
  Company Number: None

PATIENT
  Sex: Female

DRUGS (1)
  1. XALKORI [Suspect]
     Active Substance: CRIZOTINIB
     Indication: NEOPLASM MALIGNANT
     Dosage: WSP DID NOT FILL YET
     Route: 048

REACTIONS (5)
  - Cellulitis [None]
  - Vomiting [None]
  - Diarrhoea [None]
  - Oesophageal pain [None]
  - Cough [None]
